FAERS Safety Report 19507662 (Version 1)
Quarter: 2021Q3

REPORT INFORMATION
  Report Type: Report from Study
  Country: FR (occurrence: FR)
  Receive Date: 20210708
  Receipt Date: 20210708
  Transmission Date: 20211014
  Serious: Yes (Other)
  Sender: FDA-Public Use
  Company Number: FR-EXELIXIS-XL18421042155

PATIENT
  Age: 48 Year
  Sex: Male

DRUGS (1)
  1. XL184 [Suspect]
     Active Substance: CABOZANTINIB
     Indication: OSTEOSARCOMA
     Dosage: 60 MG, QD
     Route: 048
     Dates: start: 20180629

REACTIONS (2)
  - Muscle spasms [Not Recovered/Not Resolved]
  - Auditory nerve disorder [Not Recovered/Not Resolved]

NARRATIVE: CASE EVENT DATE: 20180816
